FAERS Safety Report 16448814 (Version 1)
Quarter: 2019Q2

REPORT INFORMATION
  Report Type: Spontaneous
  Country: JP (occurrence: JP)
  Receive Date: 20190619
  Receipt Date: 20190619
  Transmission Date: 20190711
  Serious: Yes (Hospitalization)
  Sender: FDA-Public Use
  Company Number: JP-ASTELLAS-2019JP007215

PATIENT
  Age: 9 Decade
  Sex: Male

DRUGS (5)
  1. AMITIZA [Suspect]
     Active Substance: LUBIPROSTONE
     Indication: CONSTIPATION
     Route: 048
     Dates: end: 20190416
  2. ARGAMATE [Suspect]
     Active Substance: CALCIUM POLYSTYRENE SULFONATE
     Indication: HYPERKALAEMIA
     Route: 048
  3. ARGAMATE [Suspect]
     Active Substance: CALCIUM POLYSTYRENE SULFONATE
     Dosage: UNK UNK, UNKNOWN FREQ.
     Route: 048
  4. XTANDI [Suspect]
     Active Substance: ENZALUTAMIDE
     Indication: HORMONE-REFRACTORY PROSTATE CANCER
     Dosage: 120 MG/DAY, UNKNOWN FREQ.
     Route: 048
     Dates: start: 20190401, end: 20190422
  5. LAXOBERON [Suspect]
     Active Substance: SODIUM PICOSULFATE
     Indication: CONSTIPATION
     Dosage: UNK UNK, UNKNOWN FREQ.
     Route: 048

REACTIONS (5)
  - Hypokalaemia [Recovered/Resolved]
  - Prescribed underdose [Unknown]
  - Decreased appetite [Not Recovered/Not Resolved]
  - Faeces soft [Unknown]
  - Diarrhoea [Recovered/Resolved]

NARRATIVE: CASE EVENT DATE: 20190402
